FAERS Safety Report 7334051-4 (Version None)
Quarter: 2011Q1

REPORT INFORMATION
  Report Type: 
  Country: None (occurrence: None)
  Receive Date: 20110302
  Receipt Date: 20110302
  Transmission Date: 20110831
  Serious: Yes (Hospitalization)
  Sender: FDA-Public Use
  Company Number: None

PATIENT
  Age: 23 Year
  Sex: Male
  Weight: 139.7079 kg

DRUGS (2)
  1. ZYPREXA [Suspect]
     Indication: SCHIZOPHRENIA
     Dosage: 20MG HS PO
     Route: 048
     Dates: start: 20101115, end: 20110203
  2. CLOZAPINE [Suspect]
     Indication: SCHIZOPHRENIA
     Dosage: 400MG HS PO
     Route: 048
     Dates: start: 20101115, end: 20110202

REACTIONS (3)
  - NEUTROPENIA [None]
  - RESPIRATORY TRACT INFECTION [None]
  - AGRANULOCYTOSIS [None]
